FAERS Safety Report 9031744 (Version 1)
Quarter: 2013Q1

REPORT INFORMATION
  Report Type: Spontaneous
  Country: IT (occurrence: IT)
  Receive Date: 20130124
  Receipt Date: 20130124
  Transmission Date: 20140127
  Serious: Yes (Death)
  Sender: FDA-Public Use
  Company Number: IT-PFIZER INC-2013019087

PATIENT
  Age: 76 Year
  Sex: Male

DRUGS (3)
  1. LINEZOLID [Suspect]
     Dosage: 600 MG, 2X/DAY
     Route: 042
  2. PIPERACILLIN SODIUM W/TAZOBACTAM SODIUM [Concomitant]
     Route: 042
  3. METRONIDAZOLE [Concomitant]
     Route: 042

REACTIONS (1)
  - Arrhythmia [Fatal]
